FAERS Safety Report 23549487 (Version 2)
Quarter: 2025Q1

REPORT INFORMATION
  Report Type: Spontaneous
  Country: GR (occurrence: GR)
  Receive Date: 20240221
  Receipt Date: 20250110
  Transmission Date: 20250409
  Serious: Yes (Other)
  Sender: SANDOZ
  Company Number: GR-PFIZER INC-202300439613

PATIENT
  Age: 14 Year
  Sex: Female

DRUGS (3)
  1. ADALIMUMAB [Suspect]
     Active Substance: ADALIMUMAB
     Indication: Juvenile spondyloarthritis
     Dosage: 40 MG, Q2W (EVERY TWO WEEKS)
     Route: 065
  2. ADALIMUMAB [Suspect]
     Active Substance: ADALIMUMAB
     Indication: Juvenile idiopathic arthritis
  3. PREDNISOLONE [Concomitant]
     Active Substance: PREDNISOLONE
     Indication: Back pain
     Route: 065

REACTIONS (2)
  - Myocarditis [Recovered/Resolved]
  - Cardiac failure [Recovered/Resolved]
